FAERS Safety Report 10967746 (Version 1)
Quarter: 2015Q1

REPORT INFORMATION
  Report Type: Spontaneous
  Country: US (occurrence: None)
  Receive Date: 20150226
  Receipt Date: 20150226
  Transmission Date: 20150721
  Serious: No
  Sender: FDA-Public Use
  Company Number: TPA2010A03449

PATIENT
  Age: 79 Year
  Sex: Male
  Weight: 82.1 kg

DRUGS (17)
  1. LEVOTHYROXINE (LEVOTHYROXINE) [Concomitant]
     Active Substance: LEVOTHYROXINE
  2. PROVENTIL (SALBUTAMOL SULFATE) [Concomitant]
  3. AZMACORT (TRIAMCINOLONE ACETONIDE) [Concomitant]
  4. NIASPAN (NICOTINIC ACID) [Concomitant]
  5. PREDNISONE (PREDNISONE) [Concomitant]
     Active Substance: PREDNISONE
  6. FISH OIL (FISH OIL) [Concomitant]
     Active Substance: FISH OIL
  7. DILTIAZEM (DILTIAZEM) [Concomitant]
  8. FLEXERFIL (CYCLOBENZAPRINE HYDROCHLORIDE) [Concomitant]
  9. LEVOXYL (LEVOTHYROXINE SODIUM) [Concomitant]
  10. OSCO NIACIN (NICOTINIC ACID) [Concomitant]
  11. BABY ASPIRIN (ACETYLSALICYLIC ACID) [Concomitant]
     Active Substance: ASPIRIN
  12. ASMANEX [Concomitant]
     Active Substance: MOMETASONE FUROATE
  13. ULORIC [Suspect]
     Active Substance: FEBUXOSTAT
     Indication: GOUT
     Route: 048
     Dates: start: 201004
  14. COLCHICINE (COLCHICINE) [Concomitant]
     Active Substance: COLCHICINE
  15. ACIPHEH (RABEPRAZOLE SODIUM) [Concomitant]
  16. LISINOPRIL (LISINOPRIL) [Concomitant]
     Active Substance: LISINOPRIL
  17. OMEPRAZOLE (OMEPRAZOLE) [Concomitant]
     Active Substance: OMEPRAZOLE

REACTIONS (5)
  - Hypoaesthesia [None]
  - Tinea pedis [None]
  - Dizziness [None]
  - Chills [None]
  - Skin exfoliation [None]

NARRATIVE: CASE EVENT DATE: 201002
